FAERS Safety Report 13713972 (Version 2)
Quarter: 2018Q4

REPORT INFORMATION
  Report Type: Spontaneous
  Country: US (occurrence: US)
  Receive Date: 20170704
  Receipt Date: 20181126
  Transmission Date: 20190204
  Serious: Yes (Death, Other)
  Sender: FDA-Public Use
  Company Number: US-JNJFOC-20170623015

PATIENT

DRUGS (32)
  1. BROMPHENIRAMINE [Suspect]
     Active Substance: BROMPHENIRAMINE
     Indication: SLEEP DISORDER THERAPY
     Route: 048
  2. CHLORPHENIRAMINE. [Suspect]
     Active Substance: CHLORPHENIRAMINE
     Indication: SLEEP DISORDER THERAPY
     Route: 048
  3. DOXYLAMINE [Suspect]
     Active Substance: DOXYLAMINE
     Indication: PRODUCT USED FOR UNKNOWN INDICATION
     Route: 048
  4. GUAIFENESIN. [Suspect]
     Active Substance: GUAIFENESIN
     Indication: ACCIDENTAL EXPOSURE TO PRODUCT
     Route: 048
  5. DIPHENHYDRAMINE. [Suspect]
     Active Substance: DIPHENHYDRAMINE
     Indication: PRODUCT USED FOR UNKNOWN INDICATION
     Route: 048
  6. BROMPHENIRAMINE [Suspect]
     Active Substance: BROMPHENIRAMINE
     Indication: ACCIDENTAL EXPOSURE TO PRODUCT
     Route: 048
  7. CHLORPHENIRAMINE. [Suspect]
     Active Substance: CHLORPHENIRAMINE
     Indication: ACCIDENTAL EXPOSURE TO PRODUCT
     Route: 048
  8. DOXYLAMINE [Suspect]
     Active Substance: DOXYLAMINE
     Indication: ACCIDENTAL EXPOSURE TO PRODUCT
     Route: 048
  9. DIPHENHYDRAMINE. [Suspect]
     Active Substance: DIPHENHYDRAMINE
     Indication: SLEEP DISORDER THERAPY
     Route: 048
  10. DEXTROMETHORPHAN [Suspect]
     Active Substance: DEXTROMETHORPHAN
     Indication: PRODUCT USED FOR UNKNOWN INDICATION
     Route: 048
  11. PHENYLEPHRINE [Suspect]
     Active Substance: PHENYLEPHRINE\PHENYLEPHRINE HYDROCHLORIDE
     Indication: PRODUCT USED FOR UNKNOWN INDICATION
     Route: 048
  12. PSEUDOEPHEDRINE. [Suspect]
     Active Substance: PSEUDOEPHEDRINE HYDROCHLORIDE
     Indication: HOMICIDE
     Route: 048
  13. PSEUDOEPHEDRINE. [Suspect]
     Active Substance: PSEUDOEPHEDRINE HYDROCHLORIDE
     Indication: PRODUCT USED FOR UNKNOWN INDICATION
     Route: 048
  14. BROMPHENIRAMINE [Suspect]
     Active Substance: BROMPHENIRAMINE
     Indication: HOMICIDE
     Route: 048
  15. CHLORPHENIRAMINE. [Suspect]
     Active Substance: CHLORPHENIRAMINE
     Indication: HOMICIDE
     Route: 048
  16. CHLORPHENIRAMINE. [Suspect]
     Active Substance: CHLORPHENIRAMINE
     Indication: PRODUCT USED FOR UNKNOWN INDICATION
     Route: 048
  17. DOXYLAMINE [Suspect]
     Active Substance: DOXYLAMINE
     Indication: HOMICIDE
     Route: 048
  18. GUAIFENESIN. [Suspect]
     Active Substance: GUAIFENESIN
     Indication: PRODUCT USED FOR UNKNOWN INDICATION
     Route: 048
  19. DIPHENHYDRAMINE. [Suspect]
     Active Substance: DIPHENHYDRAMINE
     Indication: ACCIDENTAL EXPOSURE TO PRODUCT
     Route: 048
  20. DEXTROMETHORPHAN [Suspect]
     Active Substance: DEXTROMETHORPHAN
     Indication: HOMICIDE
     Route: 048
  21. PHENYLEPHRINE [Suspect]
     Active Substance: PHENYLEPHRINE\PHENYLEPHRINE HYDROCHLORIDE
     Indication: ACCIDENTAL EXPOSURE TO PRODUCT
     Route: 048
  22. BROMPHENIRAMINE [Suspect]
     Active Substance: BROMPHENIRAMINE
     Indication: PRODUCT USED FOR UNKNOWN INDICATION
     Route: 048
  23. DOXYLAMINE [Suspect]
     Active Substance: DOXYLAMINE
     Indication: SLEEP DISORDER THERAPY
     Route: 048
  24. GUAIFENESIN. [Suspect]
     Active Substance: GUAIFENESIN
     Indication: SLEEP DISORDER THERAPY
     Route: 048
  25. PHENYLEPHRINE [Suspect]
     Active Substance: PHENYLEPHRINE\PHENYLEPHRINE HYDROCHLORIDE
     Indication: HOMICIDE
     Route: 048
  26. DIPHENHYDRAMINE. [Suspect]
     Active Substance: DIPHENHYDRAMINE
     Indication: HOMICIDE
     Route: 048
  27. DEXTROMETHORPHAN [Suspect]
     Active Substance: DEXTROMETHORPHAN
     Indication: ACCIDENTAL EXPOSURE TO PRODUCT
     Route: 048
  28. PSEUDOEPHEDRINE. [Suspect]
     Active Substance: PSEUDOEPHEDRINE HYDROCHLORIDE
     Indication: SLEEP DISORDER THERAPY
     Route: 048
  29. PHENYLEPHRINE [Suspect]
     Active Substance: PHENYLEPHRINE\PHENYLEPHRINE HYDROCHLORIDE
     Indication: SLEEP DISORDER THERAPY
     Route: 048
  30. PSEUDOEPHEDRINE. [Suspect]
     Active Substance: PSEUDOEPHEDRINE HYDROCHLORIDE
     Indication: ACCIDENTAL EXPOSURE TO PRODUCT
     Route: 048
  31. DEXTROMETHORPHAN [Suspect]
     Active Substance: DEXTROMETHORPHAN
     Indication: SLEEP DISORDER THERAPY
     Route: 048
  32. GUAIFENESIN. [Suspect]
     Active Substance: GUAIFENESIN
     Indication: HOMICIDE
     Route: 048

REACTIONS (27)
  - Ataxia [Unknown]
  - Medication error [Unknown]
  - Psychomotor hyperactivity [Unknown]
  - Hallucination [Unknown]
  - Accidental exposure to product [Unknown]
  - Agitation [Unknown]
  - Hypertension [Unknown]
  - Death [Fatal]
  - Overdose [Fatal]
  - Extra dose administered [Unknown]
  - Somnolence [Unknown]
  - Confusional state [Unknown]
  - Dizziness [Unknown]
  - Dystonia [Unknown]
  - Lethargy [Unknown]
  - Nystagmus [Unknown]
  - Pyrexia [Unknown]
  - Flushing [Unknown]
  - Product administered to patient of inappropriate age [Unknown]
  - Product use in unapproved indication [Unknown]
  - Dysarthria [Unknown]
  - Irritability [Unknown]
  - Intentional product misuse [Unknown]
  - Mydriasis [Unknown]
  - Tachycardia [Unknown]
  - Tremor [Unknown]
  - Vomiting [Unknown]
